FAERS Safety Report 10990286 (Version 1)
Quarter: 2015Q2

REPORT INFORMATION
  Report Type: Spontaneous
  Country: IT (occurrence: IT)
  Receive Date: 20150406
  Receipt Date: 20150406
  Transmission Date: 20150821
  Serious: Yes (Other)
  Sender: FDA-Public Use
  Company Number: IT-TEVA-552944ISR

PATIENT
  Age: 41 Year
  Sex: Female

DRUGS (5)
  1. NELARABINE [Suspect]
     Active Substance: NELARABINE
     Indication: NON-HODGKIN^S LYMPHOMA
     Dosage: 2 CYCLES AT A DOSE OF 1500MG/M2 ON DAY 1,3 AND 5 OF A 21 DAY CYCLE
     Route: 065
  2. BUSULFAN [Suspect]
     Active Substance: BUSULFAN
     Route: 065
  3. CYTARABINE. [Suspect]
     Active Substance: CYTARABINE
     Route: 037
  4. METHOTREXATE [Suspect]
     Active Substance: METHOTREXATE
     Route: 037
  5. CYCLOPHOSPHAMIDE. [Suspect]
     Active Substance: CYCLOPHOSPHAMIDE
     Route: 065

REACTIONS (6)
  - Ataxia [Recovering/Resolving]
  - Cytomegalovirus colitis [Unknown]
  - Paraesthesia [Recovering/Resolving]
  - Myelopathy [Recovering/Resolving]
  - Paraparesis [Recovering/Resolving]
  - Toxicity to various agents [Recovering/Resolving]
